FAERS Safety Report 12088819 (Version 2)
Quarter: 2019Q4

REPORT INFORMATION
  Report Type: Report from Study
  Country: CN (occurrence: CN)
  Receive Date: 20160218
  Receipt Date: 20191017
  Transmission Date: 20200122
  Serious: Yes (Death)
  Sender: FDA-Public Use
  Company Number: PHHO2016CN002574

PATIENT
  Age: 66 Year
  Sex: Male
  Weight: 85 kg

DRUGS (9)
  1. IRBESARTAN. [Concomitant]
     Active Substance: IRBESARTAN
     Indication: HYPERTENSION
     Dosage: 150 MG, QD
     Route: 048
     Dates: start: 20150203, end: 20160206
  2. HYDROCHLOROTHIAZIDE. [Concomitant]
     Active Substance: HYDROCHLOROTHIAZIDE
     Indication: HYPERTENSION
  3. ACETYLSALICYLIC ACID [Suspect]
     Active Substance: ASPIRIN
     Indication: ARTERIOSCLEROSIS CORONARY ARTERY
     Dosage: 100 MG, QD
     Route: 048
     Dates: start: 20150203, end: 20160206
  4. ISOSORBIDE DINITRATE. [Concomitant]
     Active Substance: ISOSORBIDE DINITRATE
     Indication: ARTERIOSCLEROSIS CORONARY ARTERY
     Dosage: 10 MG, QD
     Route: 048
     Dates: start: 20150203, end: 20160206
  5. VALSARTAN. [Suspect]
     Active Substance: VALSARTAN
     Indication: CARDIAC FAILURE CHRONIC
     Dosage: 40 MG, BID
     Route: 048
     Dates: start: 20160204, end: 20160206
  6. ROSUVASTATIN. [Concomitant]
     Active Substance: ROSUVASTATIN
     Indication: ARTERIOSCLEROSIS CORONARY ARTERY
     Dosage: 10 MG, QD
     Route: 048
     Dates: start: 20150203, end: 20160206
  7. NO TREATMENT RECEIVED [Suspect]
     Active Substance: UNSPECIFIED INGREDIENT
     Indication: CARDIAC FAILURE CHRONIC
     Dosage: NO TREATMENT
     Route: 065
  8. BISOPROLOL [Concomitant]
     Active Substance: BISOPROLOL
     Indication: ARTERIOSCLEROSIS CORONARY ARTERY
     Dosage: 2.5 MG, QD
     Route: 048
     Dates: start: 20150203, end: 20160206
  9. ISOSORBIDE MONONITRATE. [Concomitant]
     Active Substance: ISOSORBIDE MONONITRATE
     Indication: ARTERIOSCLEROSIS CORONARY ARTERY
     Dosage: 40 MG, QD
     Route: 048
     Dates: start: 20150203, end: 20160206

REACTIONS (1)
  - Cerebral haemorrhage [Fatal]

NARRATIVE: CASE EVENT DATE: 20160207
